FAERS Safety Report 4488746-0 (Version None)
Quarter: 2004Q4

REPORT INFORMATION
  Report Type: 
  Country: None (occurrence: None)
  Receive Date: 20041025
  Receipt Date: 20041012
  Transmission Date: 20050328
  Serious: Yes (Life-Threatening, Hospitalization, Other)
  Sender: FDA-Public Use
  Company Number: 2004059977

PATIENT
  Age: 61 Year
  Sex: Male

DRUGS (2)
  1. EPANUTIN INFATABS (PHENYTOIN SODIUM) [Suspect]
     Indication: ALCOHOLIC SEIZURE
     Dosage: 300 MG (300 MG, 1 IN 1 D), ORAL
     Route: 048
  2. THIAMINE (THIAMINE) [Concomitant]

REACTIONS (6)
  - ANTICONVULSANT DRUG LEVEL ABOVE THERAPEUTIC [None]
  - ATAXIA [None]
  - CONFUSIONAL STATE [None]
  - MEDICATION ERROR [None]
  - NYSTAGMUS [None]
  - SOMNOLENCE [None]
